FAERS Safety Report 10561177 (Version 2)
Quarter: 2015Q1

REPORT INFORMATION
  Report Type: Report from Study
  Country: GB (occurrence: GB)
  Receive Date: 20141103
  Receipt Date: 20150209
  Transmission Date: 20150720
  Serious: Yes (Hospitalization, Other)
  Sender: FDA-Public Use
  Company Number: GB-GLAXOSMITHKLINE-GB2014GSK012760

PATIENT
  Age: 68 Year
  Sex: Female
  Weight: 58.5 kg

DRUGS (9)
  1. ACICLOVIR [Concomitant]
     Active Substance: ACYCLOVIR
  2. LANSOPRAZOLE. [Concomitant]
     Active Substance: LANSOPRAZOLE
  3. VITAMIN D [Concomitant]
     Active Substance: CHOLECALCIFEROL
  4. IDELALISIB [Suspect]
     Active Substance: IDELALISIB
     Indication: CHRONIC LYMPHOCYTIC LEUKAEMIA
     Dosage: 100 MG, BID
     Route: 048
     Dates: start: 20141009
  5. ORAMORPH SR SUSTAINED RELEASE [Concomitant]
     Active Substance: MORPHINE SULFATE
  6. AZITHROMYCIN [Concomitant]
     Active Substance: AZITHROMYCIN ANHYDROUS
  7. OFATUMUMAB [Suspect]
     Active Substance: OFATUMUMAB
     Indication: CHRONIC LYMPHOCYTIC LEUKAEMIA
     Dosage: 1000 MG, QD
     Route: 042
     Dates: start: 20131106, end: 20140413
  8. G-CSF [Concomitant]
     Active Substance: GRANULOCYTE COLONY-STIMULATING FACTOR NOS
  9. CO-AMOXICLAV [Concomitant]
     Active Substance: AMOXICILLIN\CLAVULANIC ACID

REACTIONS (3)
  - Pyrexia [Recovered/Resolved]
  - Neutropenia [Recovered/Resolved]
  - Lower respiratory tract infection [Recovered/Resolved]

NARRATIVE: CASE EVENT DATE: 20141011
